FAERS Safety Report 5398342-9 (Version None)
Quarter: 2007Q3

REPORT INFORMATION
  Report Type: 
  Country: None (occurrence: None)
  Receive Date: 20070724
  Receipt Date: 20070716
  Transmission Date: 20080115
  Serious: Yes (Hospitalization, Other)
  Sender: FDA-Public Use
  Company Number: 016196

PATIENT
  Age: 37 Year
  Sex: Female

DRUGS (2)
  1. CLARAVIS [Suspect]
     Indication: ACNE
     Dosage: 40 MG, QD, ORAL; 30 MG, BID, ORAL
     Route: 048
     Dates: start: 20070517, end: 20070617
  2. CLARAVIS [Suspect]
     Indication: ACNE
     Dosage: 40 MG, QD, ORAL; 30 MG, BID, ORAL
     Route: 048
     Dates: start: 20070618, end: 20070705

REACTIONS (1)
  - PULMONARY EMBOLISM [None]
